FAERS Safety Report 5338035-7 (Version None)
Quarter: 2007Q2

REPORT INFORMATION
  Report Type: 
  Country: None (occurrence: None)
  Receive Date: 20070530
  Receipt Date: 20070522
  Transmission Date: 20071010
  Serious: Yes (Hospitalization, Other)
  Sender: FDA-Public Use
  Company Number: PHEH2007US07790

PATIENT
  Age: 78 Year
  Sex: Male

DRUGS (1)
  1. METOPROLOL TARTRATE [Suspect]
     Indication: HYPERTENSION
     Route: 065
     Dates: end: 20070518

REACTIONS (4)
  - BRADYCARDIA [None]
  - CERVICAL VERTEBRAL FRACTURE [None]
  - FALL [None]
  - PRESYNCOPE [None]
